FAERS Safety Report 4563231-6 (Version None)
Quarter: 2005Q1

REPORT INFORMATION
  Report Type: 
  Country: None (occurrence: None)
  Receive Date: 20050125
  Receipt Date: 20050111
  Transmission Date: 20050727
  Serious: Yes (Death, Hospitalization)
  Sender: FDA-Public Use
  Company Number: NL-2005-000802

PATIENT
  Age: 74 Year
  Sex: Male

DRUGS (4)
  1. FLUDARABINE PHOSPHATE [Suspect]
     Indication: NON-HODGKIN'S LYMPHOMA STAGE IV
  2. CHLORAMBUCIL (CHLORAMBUCIL) [Concomitant]
  3. CYCLOPHOSPHAMIDE W/VINCRISTINE/PREDNISONE (VINCRISTINE) [Concomitant]
  4. PREDNISOLONE [Concomitant]

REACTIONS (23)
  - AGEUSIA [None]
  - ATRIAL FIBRILLATION [None]
  - AUTOANTIBODY POSITIVE [None]
  - BLISTER [None]
  - BLOOD LACTATE DEHYDROGENASE INCREASED [None]
  - CARDIAC FAILURE [None]
  - DYSPHONIA [None]
  - EATING DISORDER [None]
  - GENERAL PHYSICAL HEALTH DETERIORATION [None]
  - KARNOFSKY SCALE WORSENED [None]
  - LEFT VENTRICULAR FAILURE [None]
  - LYMPHADENOPATHY [None]
  - LYMPHOBLAST COUNT INCREASED [None]
  - LYMPHOMA [None]
  - MOUTH ULCERATION [None]
  - NIGHT SWEATS [None]
  - PANCYTOPENIA [None]
  - PARANEOPLASTIC SYNDROME [None]
  - PHIMOSIS [None]
  - PULMONARY OEDEMA [None]
  - SPLENOMEGALY [None]
  - THERAPY NON-RESPONDER [None]
  - WEIGHT DECREASED [None]
